FAERS Safety Report 5682320-6 (Version None)
Quarter: 2008Q1

REPORT INFORMATION
  Report Type: 
  Country: None (occurrence: None)
  Receive Date: 20080327
  Receipt Date: 20070410
  Transmission Date: 20080703
  Serious: No
  Sender: FDA-Public Use
  Company Number: US-BAUSCH-2007BL001166

PATIENT
  Age: 33 Year
  Sex: Male

DRUGS (1)
  1. ALREX [Suspect]
     Indication: EPISCLERITIS
     Route: 047
     Dates: start: 20070403, end: 20070410

REACTIONS (2)
  - ABNORMAL SENSATION IN EYE [None]
  - DRUG HYPERSENSITIVITY [None]
